FAERS Safety Report 9592939 (Version 3)
Quarter: 2013Q4

REPORT INFORMATION
  Report Type: Spontaneous
  Country: DE (occurrence: DE)
  Receive Date: 20131004
  Receipt Date: 20131028
  Transmission Date: 20140711
  Serious: Yes (Other)
  Sender: FDA-Public Use
  Company Number: PHHY2013DE110342

PATIENT
  Age: 58 Year
  Sex: Male
  Weight: 66 kg

DRUGS (3)
  1. TASIGNA [Suspect]
     Indication: CHRONIC MYELOID LEUKAEMIA
     Dosage: 150 MG PER DAY
     Route: 048
     Dates: start: 201212
  2. RAMIPRIL [Concomitant]
     Indication: HYPERTENSION
     Dosage: 5 MG, PER DAY
     Route: 048
  3. ASS [Concomitant]
     Indication: PLATELET AGGREGATION

REACTIONS (3)
  - Transient ischaemic attack [Recovered/Resolved]
  - Amaurosis fugax [Recovered/Resolved]
  - Carotid artery stenosis [Recovered/Resolved]
